FAERS Safety Report 21883094 (Version 1)
Quarter: 2023Q1

REPORT INFORMATION
  Report Type: Spontaneous
  Country: SE (occurrence: SE)
  Receive Date: 20230119
  Receipt Date: 20230119
  Transmission Date: 20230417
  Serious: Yes (Other)
  Sender: FDA-Public Use
  Company Number: None

PATIENT
  Age: 44 Year
  Sex: Female

DRUGS (3)
  1. ETANERCEPT [Suspect]
     Active Substance: ETANERCEPT
     Indication: Rheumatoid arthritis
     Dosage: LIQUID FOR INJECTION
     Route: 058
     Dates: start: 20170317, end: 20210211
  2. folic acid hydrate [Concomitant]
     Indication: Product used for unknown indication
     Dosage: 5 MG 2X1 1 DAY A WEEK
     Route: 048
  3. METHOTREXATE [Concomitant]
     Active Substance: METHOTREXATE
     Indication: Product used for unknown indication
     Dosage: 2.5 MG 3X1 TODAY A WEEK
     Route: 048

REACTIONS (1)
  - Peroneal nerve palsy [Recovering/Resolving]

NARRATIVE: CASE EVENT DATE: 20201031
